FAERS Safety Report 20177443 (Version 6)
Quarter: 2022Q1

REPORT INFORMATION
  Report Type: Report from Study
  Country: US (occurrence: US)
  Receive Date: 20211213
  Receipt Date: 20220317
  Transmission Date: 20220423
  Serious: No
  Sender: FDA-Public Use
  Company Number: US-NOVARTISTESTPH-NVSC2021US283672

PATIENT
  Sex: Male

DRUGS (2)
  1. ENTRESTO [Suspect]
     Active Substance: SACUBITRIL\VALSARTAN
     Indication: Product used for unknown indication
     Dosage: 2 DOSAGE FORM, BID(24/26 MG)
     Route: 048
     Dates: start: 20211118
  2. ENTRESTO [Suspect]
     Active Substance: SACUBITRIL\VALSARTAN
     Dosage: 1 DOSAGE FORM, BID(49/51MG)
     Route: 048
     Dates: start: 20211118

REACTIONS (7)
  - COVID-19 [Unknown]
  - Confusional state [Unknown]
  - Dyspnoea [Unknown]
  - Hypermetropia [Unknown]
  - Dizziness postural [Unknown]
  - Ill-defined disorder [Unknown]
  - Nerve injury [Unknown]
